FAERS Safety Report 23691064 (Version 1)
Quarter: 2024Q2

REPORT INFORMATION
  Report Type: Spontaneous
  Country: JP (occurrence: JP)
  Receive Date: 20240401
  Receipt Date: 20240401
  Transmission Date: 20240716
  Serious: Yes (Other)
  Sender: FDA-Public Use
  Company Number: JP-SUN PHARMACEUTICAL INDUSTRIES LTD-2024R1-439011

PATIENT
  Age: 54 Year
  Sex: Female
  Weight: 65.5 kg

DRUGS (2)
  1. PREDNISONE [Suspect]
     Active Substance: PREDNISONE
     Indication: Type 2 diabetes mellitus
     Dosage: 5 MILLIGRAM/DAY
     Route: 065
  2. PREDNISONE [Suspect]
     Active Substance: PREDNISONE
     Dosage: 4 MILLIGRAM/DAY
     Route: 065

REACTIONS (1)
  - Condition aggravated [Unknown]
